FAERS Safety Report 7589274-6 (Version None)
Quarter: 2011Q2

REPORT INFORMATION
  Report Type: 
  Country: None (occurrence: None)
  Receive Date: 20110627
  Receipt Date: 20110613
  Transmission Date: 20111010
  Serious: Yes (Hospitalization)
  Sender: FDA-Public Use
  Company Number: UTC-006363

PATIENT
  Age: 45 Year
  Sex: Female
  Weight: 61.8 kg

DRUGS (3)
  1. REMODULIN [Suspect]
     Indication: PULMONARY HYPERTENSION
     Dosage: 123.84 UG/KG (0.086 UG/KG, 1 IN 1 MIN), SUBCUTANEOUS
     Route: 058
     Dates: start: 20100310
  2. DIURETICS (DIURETICS) [Concomitant]
  3. PLAVIX [Concomitant]

REACTIONS (2)
  - ASCITES [None]
  - OEDEMA [None]
